FAERS Safety Report 21249926 (Version 2)
Quarter: 2023Q2

REPORT INFORMATION
  Report Type: Spontaneous
  Country: GB (occurrence: GB)
  Receive Date: 20220824
  Receipt Date: 20230615
  Transmission Date: 20230721
  Serious: Yes (Hospitalization)
  Sender: FDA-Public Use
  Company Number: GB-MYLANLABS-2022M1086882

PATIENT
  Age: 23 Year
  Sex: Male

DRUGS (1)
  1. CLOZARIL [Suspect]
     Active Substance: CLOZAPINE
     Indication: Schizophrenia
     Dosage: UNK
     Route: 048
     Dates: start: 20220721

REACTIONS (10)
  - Catatonia [Unknown]
  - Febrile infection [Unknown]
  - C-reactive protein increased [Recovering/Resolving]
  - Haemoglobin decreased [Unknown]
  - Mean cell volume decreased [Unknown]
  - Haematocrit decreased [Recovering/Resolving]
  - Mean cell haemoglobin decreased [Not Recovered/Not Resolved]
  - Monocyte count increased [Unknown]
  - White blood cell count increased [Recovering/Resolving]
  - Mean cell haemoglobin concentration decreased [Unknown]

NARRATIVE: CASE EVENT DATE: 20220811
